FAERS Safety Report 8892450 (Version 1)
Quarter: 2012Q4

REPORT INFORMATION
  Report Type: 
  Country: US (occurrence: US)
  Receive Date: 20121107
  Receipt Date: 20121107
  Transmission Date: 20130627
  Serious: No
  Sender: FDA-Public Use
  Company Number: US-AMGEN-USASP2011061448

PATIENT
  Age: 31 Year
  Sex: Female

DRUGS (3)
  1. ENBREL [Suspect]
     Indication: JUVENILE ARTHRITIS
     Dosage: 50 mg, qwk
     Dates: start: 20110605, end: 20111105
  2. ENBREL [Suspect]
     Indication: RHEUMATOID ARTHRITIS
  3. TREXALL [Concomitant]
     Dosage: 1 mg, qwk
     Dates: start: 1994

REACTIONS (1)
  - Rheumatoid arthritis [Not Recovered/Not Resolved]
